FAERS Safety Report 18259089 (Version 2)
Quarter: 2020Q4

REPORT INFORMATION
  Report Type: Spontaneous
  Country: US (occurrence: US)
  Receive Date: 20200911
  Receipt Date: 20201021
  Transmission Date: 20210113
  Serious: No
  Sender: FDA-Public Use
  Company Number: US-PFIZER INC-2020350405

PATIENT
  Age: 61 Year
  Sex: Female
  Weight: 72.56 kg

DRUGS (1)
  1. METHOTREXATE SODIUM. [Suspect]
     Active Substance: METHOTREXATE SODIUM
     Indication: PAIN
     Dosage: 2.5 MG, UNK
     Dates: start: 2020

REACTIONS (1)
  - Therapeutic product effect incomplete [Unknown]
